FAERS Safety Report 4299622-0 (Version None)
Quarter: 2004Q1

REPORT INFORMATION
  Report Type: 
  Country: None (occurrence: None)
  Receive Date: 20040217
  Receipt Date: 20040206
  Transmission Date: 20041129
  Serious: Yes (Life-Threatening, Hospitalization)
  Sender: FDA-Public Use
  Company Number: 2003191437US

PATIENT
  Age: 50 Year
  Sex: Female

DRUGS (18)
  1. ELLENCE [Suspect]
     Indication: BREAST CANCER FEMALE
     Dosage: 135 MG, CYCLIC, IV
     Route: 042
     Dates: start: 20031205
  2. TAXOTERE [Suspect]
     Indication: BREAST CANCER FEMALE
     Dosage: 135 MG, CYCLIC, IV
     Route: 042
     Dates: start: 20031205
  3. CYCLOPHOSPHAMIDE [Suspect]
     Indication: BREAST CANCER FEMALE
     Dosage: 90 MG, CYCLIC, IV
     Route: 042
     Dates: start: 20031205
  4. ATENOLOL [Concomitant]
  5. VALTREX [Concomitant]
  6. NEXIUM [Concomitant]
  7. ALLEGRA [Concomitant]
  8. LEVOXYL [Concomitant]
  9. MULTIVITAMINS (ERGOCALCIFEROL, RETINOL, PANTHENOL) [Concomitant]
  10. DARVOCET-N 100 [Concomitant]
  11. AMBIEN [Concomitant]
  12. AUGMENTIN ORAL [Concomitant]
  13. DECADRON [Concomitant]
  14. EMEND [Concomitant]
  15. IMODIUM [Concomitant]
  16. ANZEMET (DOLASETRON MESILATE) [Concomitant]
  17. REGLAN [Concomitant]
  18. ZOFRAN [Concomitant]

REACTIONS (16)
  - BLOOD PRESSURE SYSTOLIC DECREASED [None]
  - COLON CANCER [None]
  - COMPUTERISED TOMOGRAM ABNORMAL [None]
  - DEHYDRATION [None]
  - DIARRHOEA [None]
  - DIZZINESS [None]
  - FEBRILE NEUTROPENIA [None]
  - FEELING ABNORMAL [None]
  - HAEMATOCRIT DECREASED [None]
  - HAEMOGLOBIN DECREASED [None]
  - INTESTINAL FUNCTIONAL DISORDER [None]
  - MALAISE [None]
  - MYALGIA [None]
  - PLATELET COUNT DECREASED [None]
  - SEPSIS [None]
  - WHITE BLOOD CELL COUNT DECREASED [None]
